FAERS Safety Report 19371684 (Version 1)
Quarter: 2021Q2

REPORT INFORMATION
  Report Type: Spontaneous
  Country: US (occurrence: US)
  Receive Date: 20210603
  Receipt Date: 20210603
  Transmission Date: 20210717
  Serious: No
  Sender: FDA-Public Use
  Company Number: US-SA-2021SA181737

PATIENT
  Sex: Female

DRUGS (1)
  1. DUPIXENT [Suspect]
     Active Substance: DUPILUMAB
     Indication: ECZEMA
     Dosage: 300 MG, Q4W
     Route: 058
     Dates: start: 20200202

REACTIONS (6)
  - Sleep disorder [Unknown]
  - Fungal infection [Unknown]
  - Drug ineffective [Unknown]
  - Discomfort [Unknown]
  - Rash [Unknown]
  - Eczema [Unknown]
